FAERS Safety Report 24976605 (Version 3)
Quarter: 2025Q2

REPORT INFORMATION
  Report Type: Spontaneous
  Country: US (occurrence: US)
  Receive Date: 20250217
  Receipt Date: 20250608
  Transmission Date: 20250716
  Serious: Yes (Other)
  Sender: COHERUS
  Company Number: US-COHERUS BIOSCIENCES, INC-2025-COH-US000095

PATIENT

DRUGS (2)
  1. UDENYCA [Suspect]
     Active Substance: PEGFILGRASTIM-CBQV
     Indication: Prophylaxis
     Route: 058
     Dates: start: 20240305, end: 20240305
  2. UDENYCA [Suspect]
     Active Substance: PEGFILGRASTIM-CBQV
     Route: 058
     Dates: start: 20250207

REACTIONS (4)
  - Neutrophil count decreased [Unknown]
  - Device malfunction [Unknown]
  - Product dose omission issue [Unknown]
  - Treatment noncompliance [Unknown]

NARRATIVE: CASE EVENT DATE: 20250125
